FAERS Safety Report 14371756 (Version 1)
Quarter: 2018Q1

REPORT INFORMATION
  Report Type: Spontaneous
  Country: GB (occurrence: GB)
  Receive Date: 20180109
  Receipt Date: 20180109
  Transmission Date: 20180509
  Serious: Yes (Disabling)
  Sender: FDA-Public Use
  Company Number: None

PATIENT
  Age: 27 Year
  Sex: Female
  Weight: 40.5 kg

DRUGS (1)
  1. EUMOVATE [Suspect]
     Active Substance: CLOBETASONE BUTYRATE
     Indication: ECZEMA
     Dosage: QUANTITY:1 PATCH(ES);?
     Route: 061
     Dates: start: 20130118, end: 20171116

REACTIONS (4)
  - Application site erythema [None]
  - Skin burning sensation [None]
  - Application site swelling [None]
  - Chest pain [None]

NARRATIVE: CASE EVENT DATE: 20171119
